FAERS Safety Report 8840654 (Version 2)
Quarter: 2012Q4

REPORT INFORMATION
  Report Type: 
  Country: US (occurrence: US)
  Receive Date: 20121015
  Receipt Date: 20121105
  Transmission Date: 20130627
  Serious: Yes (Other)
  Sender: FDA-Public Use
  Company Number: US-PFIZER INC-2012252115

PATIENT
  Age: 64 Year
  Sex: Female
  Weight: 101.59 kg

DRUGS (4)
  1. LYRICA [Suspect]
     Indication: FIBROMYALGIA
     Dosage: one 50mg in the morning and three 50mg at night
  2. LYRICA [Suspect]
     Indication: NEUROPATHY
  3. SPIRONOLACTONE [Concomitant]
     Dosage: UNK
  4. CYMBALTA [Concomitant]

REACTIONS (2)
  - Arterial disorder [Unknown]
  - Temporal arteritis [Unknown]
